FAERS Safety Report 7121462-5 (Version None)
Quarter: 2010Q4

REPORT INFORMATION
  Report Type: 
  Country: None (occurrence: None)
  Receive Date: 20101119
  Receipt Date: 20101119
  Transmission Date: 20110411
  Serious: Yes (Hospitalization)
  Sender: FDA-Public Use
  Company Number: None

PATIENT
  Sex: Female
  Weight: 93.4 kg

DRUGS (3)
  1. CYCLOPHOSPHAMIDE [Suspect]
     Dosage: 5048 MG
     Dates: end: 20101021
  2. DOXORUBICIN HCL [Suspect]
     Dosage: 486 MG
     Dates: end: 20101104
  3. TAXOL [Suspect]
     Dosage: 1556 MG
     Dates: end: 20100916

REACTIONS (10)
  - ABDOMINAL DISCOMFORT [None]
  - DECREASED APPETITE [None]
  - FATIGUE [None]
  - FEBRILE NEUTROPENIA [None]
  - HYPERAESTHESIA [None]
  - LEUKOPENIA [None]
  - NAUSEA [None]
  - RASH [None]
  - SKIN HYPERPIGMENTATION [None]
  - VOMITING [None]
